FAERS Safety Report 5249344-4 (Version None)
Quarter: 2007Q1

REPORT INFORMATION
  Report Type: 
  Country: None (occurrence: None)
  Receive Date: 20070228
  Receipt Date: 20061208
  Transmission Date: 20070707
  Serious: Yes (Hospitalization)
  Sender: FDA-Public Use
  Company Number: US-GLAXOSMITHKLINE-A0630987A

PATIENT

DRUGS (1)
  1. EPZICOM [Suspect]
     Indication: DRUG USE FOR UNKNOWN INDICATION

REACTIONS (7)
  - ABDOMINAL PAIN [None]
  - BLOOD PRESSURE DECREASED [None]
  - COUGH [None]
  - MALAISE [None]
  - PYREXIA [None]
  - RASH [None]
  - VOMITING [None]
